FAERS Safety Report 5853678-X (Version None)
Quarter: 2008Q3

REPORT INFORMATION
  Report Type: 
  Country: None (occurrence: None)
  Receive Date: 20080822
  Receipt Date: 20080807
  Transmission Date: 20090109
  Serious: Yes (Hospitalization)
  Sender: FDA-Public Use
  Company Number: JP-ASTRAZENECA-2008SE03910

PATIENT
  Age: 84 Year
  Sex: Female

DRUGS (4)
  1. AMIAS 16MG TABLETS [Suspect]
     Indication: HYPERTENSION
     Route: 048
     Dates: start: 20051001, end: 20080701
  2. AMLODIPINE [Concomitant]
     Indication: HYPERTENSION
     Route: 048
     Dates: start: 20080616
  3. ASPIRIN [Concomitant]
     Indication: ANTIPLATELET THERAPY
     Route: 048
     Dates: start: 20060201
  4. OMEPRAZOLE [Concomitant]
     Route: 048
     Dates: start: 20080215

REACTIONS (2)
  - CONFUSIONAL STATE [None]
  - HYPONATRAEMIA [None]
